FAERS Safety Report 7077931-X (Version None)
Quarter: 2010Q4

REPORT INFORMATION
  Report Type: 
  Country: None (occurrence: None)
  Receive Date: 20101101
  Receipt Date: 20101015
  Transmission Date: 20110411
  Serious: Yes (Death)
  Sender: FDA-Public Use
  Company Number: US-AMGEN-USASP2010000548

PATIENT

DRUGS (4)
  1. NPLATE [Suspect]
     Indication: IDIOPATHIC THROMBOCYTOPENIC PURPURA
     Dates: start: 20090424
  2. CORTICOSTEROIDS [Concomitant]
     Dosage: UNK
     Dates: start: 20090418
  3. IMMU-G [Concomitant]
     Dosage: UNK
     Dates: start: 20090419, end: 20090423
  4. RITUXIMAB [Concomitant]
     Dosage: UNK
     Dates: start: 20090425

REACTIONS (4)
  - DEATH [None]
  - HAEMOGLOBIN DECREASED [None]
  - PLATELET COUNT DECREASED [None]
  - WHITE BLOOD CELL COUNT INCREASED [None]
